FAERS Safety Report 6882256-9 (Version None)
Quarter: 2010Q3

REPORT INFORMATION
  Report Type: 
  Country: None (occurrence: None)
  Receive Date: 20100729
  Receipt Date: 20100723
  Transmission Date: 20110219
  Serious: Yes (Hospitalization)
  Sender: FDA-Public Use
  Company Number: DE-ELI_LILLY_AND_COMPANY-DE201005007886

PATIENT
  Age: 57 Year
  Sex: Male

DRUGS (8)
  1. BYETTA [Suspect]
     Indication: TYPE 2 DIABETES MELLITUS
     Dosage: 5 UG, 2/D
     Route: 058
     Dates: start: 20080226
  2. BYETTA [Suspect]
     Dosage: 10 UG, 2/D
     Route: 065
     Dates: start: 20080226
  3. ASPIRIN [Concomitant]
     Dosage: UNK, UNKNOWN
     Route: 065
  4. LISINOPRIL [Concomitant]
     Dosage: UNK, UNKNOWN
     Route: 065
  5. METFORMIN HCL [Concomitant]
     Dosage: UNK, UNKNOWN
     Route: 065
  6. NITRANGIN [Concomitant]
     Dosage: UNK, UNKNOWN
     Route: 065
  7. PENTAERYTHRITOL TETRANITRATE [Concomitant]
     Dosage: UNK, UNKNOWN
     Route: 065
  8. SIMVA [Concomitant]
     Dosage: UNK, UNKNOWN
     Route: 065

REACTIONS (1)
  - BLADDER CANCER [None]
